FAERS Safety Report 5214880-3 (Version None)
Quarter: 2006Q4

REPORT INFORMATION
  Report Type: 
  Country: None (occurrence: None)
  Receive Date: 20061108
  Receipt Date: 20060307
  Transmission Date: 20070319
  Serious: Yes (Other)
  Sender: FDA-Public Use
  Company Number: PHEH2006US02310

PATIENT
  Sex: Female

DRUGS (2)
  1. ESTRADERM [Suspect]
     Indication: MENOPAUSAL SYMPTOMS
     Dosage: 0.05 MG, TRANSDERMAL
     Route: 062
     Dates: start: 19930801, end: 20060206
  2. PROVERA [Suspect]
     Dates: start: 19930101

REACTIONS (2)
  - BREAST CANCER [None]
  - BREAST LUMP REMOVAL [None]
